FAERS Safety Report 5189046-6 (Version None)
Quarter: 2006Q4

REPORT INFORMATION
  Report Type: 
  Country: None (occurrence: None)
  Receive Date: 20061221
  Receipt Date: 20061212
  Transmission Date: 20070319
  Serious: Yes (Other)
  Sender: FDA-Public Use
  Company Number: US-ELI_LILLY_AND_COMPANY-US200612001850

PATIENT
  Age: 42 Year
  Sex: Male

DRUGS (5)
  1. CYMBALTA [Suspect]
     Indication: DEPRESSION
     Dosage: 30 MG, DAILY (1/D)
     Dates: start: 20051001, end: 20061106
  2. CYMBALTA [Suspect]
     Dosage: 60 MG, DAILY (1/D)
     Route: 048
     Dates: start: 20061107
  3. XANAX                                   /USA/ [Concomitant]
     Indication: ANXIETY
  4. LORTAB [Concomitant]
     Indication: PAIN
  5. SOMA [Concomitant]
     Indication: PAIN

REACTIONS (3)
  - AGGRESSION [None]
  - AGITATION [None]
  - IMPRISONMENT [None]
